FAERS Safety Report 10023617 (Version 2)
Quarter: 2014Q1

REPORT INFORMATION
  Report Type: Spontaneous
  Country: US (occurrence: None)
  Receive Date: 20140107
  Receipt Date: 20140128
  Transmission Date: 20141002
  Serious: Yes (Hospitalization)
  Sender: FDA-Public Use
  Company Number: 2013EXPUS00036

PATIENT
  Age: 51 Year
  Sex: Male
  Weight: 109.3 kg

DRUGS (1)
  1. EXPAREL (BUPIVACAINE) LIPOSOME INJECTABLE SUSPENSION, MG/ML [Suspect]
     Indication: POSTOPERATIVE ANALGESIA
     Dosage: 30 CC, 1X, UNKNOWN
     Dates: start: 20131219, end: 20131219

REACTIONS (2)
  - Pain [None]
  - Drug ineffective [None]
